FAERS Safety Report 8373286-9 (Version None)
Quarter: 2012Q2

REPORT INFORMATION
  Report Type: 
  Country: None (occurrence: None)
  Receive Date: 20120521
  Receipt Date: 20110406
  Transmission Date: 20120825
  Serious: No
  Sender: FDA-Public Use
  Company Number: US-TEVA-2011001689

PATIENT
  Age: 58 Year
  Sex: Male

DRUGS (3)
  1. DEXAMETHASONE [Concomitant]
     Indication: MULTIPLE MYELOMA
  2. TREANDA [Suspect]
     Indication: MULTIPLE MYELOMA
     Route: 042
  3. VELCADE [Concomitant]
     Indication: MULTIPLE MYELOMA

REACTIONS (3)
  - SKIN REACTION [None]
  - ACNE [None]
  - PAIN OF SKIN [None]
